FAERS Safety Report 6395913-8 (Version None)
Quarter: 2009Q4

REPORT INFORMATION
  Report Type: 
  Country: None (occurrence: None)
  Receive Date: 20091009
  Receipt Date: 20090831
  Transmission Date: 20100525
  Serious: No
  Sender: FDA-Public Use
  Company Number: A0805183A

PATIENT
  Age: 48 Year
  Sex: Female

DRUGS (8)
  1. TYKERB [Suspect]
     Indication: BREAST CANCER
     Dosage: 1000MG PER DAY
     Route: 048
     Dates: start: 20090824
  2. HERCEPTIN [Concomitant]
  3. LOPERAMIDE HYDROCHLORIDE [Concomitant]
  4. METFORMIN HCL [Concomitant]
  5. GLIPIZIDE [Concomitant]
  6. LYRICA [Concomitant]
  7. ALEVE [Concomitant]
  8. INSULIN [Concomitant]

REACTIONS (4)
  - DIARRHOEA [None]
  - NAUSEA [None]
  - SKIN CHAPPED [None]
  - SOMNOLENCE [None]
